FAERS Safety Report 6126396-0 (Version None)
Quarter: 2009Q1

REPORT INFORMATION
  Report Type: 
  Country: None (occurrence: None)
  Receive Date: 20090320
  Receipt Date: 20090311
  Transmission Date: 20090719
  Serious: Yes (Other)
  Sender: FDA-Public Use
  Company Number: US-BAYER-200915116NA

PATIENT
  Age: 33 Year
  Sex: Female

DRUGS (2)
  1. AVELOX [Suspect]
     Indication: PHARYNGITIS
     Route: 048
     Dates: start: 20070307
  2. PHENOBARBITAL TAB [Concomitant]
     Indication: CONVULSION

REACTIONS (1)
  - ACUTE LEUKAEMIA [None]
